FAERS Safety Report 6503502-7 (Version None)
Quarter: 2009Q4

REPORT INFORMATION
  Report Type: 
  Country: None (occurrence: None)
  Receive Date: 20091217
  Receipt Date: 20091207
  Transmission Date: 20100525
  Serious: Yes (Hospitalization)
  Sender: FDA-Public Use
  Company Number: FR-PFIZER INC-2009306479

PATIENT
  Age: 12 Year
  Sex: Male

DRUGS (1)
  1. ZYVOXID [Suspect]
     Dosage: 300 MG, 2X/DAY
     Route: 048
     Dates: start: 20091020, end: 20091106

REACTIONS (1)
  - PANCREATITIS [None]
